FAERS Safety Report 11582652 (Version 1)
Quarter: 2015Q4

REPORT INFORMATION
  Report Type: Spontaneous
  Country: US (occurrence: US)
  Receive Date: 20151001
  Receipt Date: 20151001
  Transmission Date: 20160304
  Serious: No
  Sender: FDA-Public Use
  Company Number: US-ROCHE-682185

PATIENT
  Age: 56 Year
  Sex: Male
  Weight: 62.1 kg

DRUGS (3)
  1. CELEXA [Concomitant]
     Active Substance: CITALOPRAM HYDROBROMIDE
     Route: 065
  2. PEGASYS [Suspect]
     Active Substance: PEGINTERFERON ALFA-2A
     Indication: HEPATITIS C
     Dosage: FORM: PRE-FILLED SYRINGE, 0.5 CC
     Route: 058
  3. COPEGUS [Suspect]
     Active Substance: RIBAVIRIN
     Indication: HEPATITIS C
     Route: 065

REACTIONS (7)
  - Chapped lips [Unknown]
  - Fatigue [Not Recovered/Not Resolved]
  - Tongue disorder [Unknown]
  - Headache [Unknown]
  - Glossitis [Unknown]
  - Toothache [Unknown]
  - Burning sensation [Unknown]

NARRATIVE: CASE EVENT DATE: 20100201
